FAERS Safety Report 12562372 (Version 4)
Quarter: 2016Q4

REPORT INFORMATION
  Report Type: Report from Study
  Country: US (occurrence: US)
  Receive Date: 20160715
  Receipt Date: 20161208
  Transmission Date: 20170207
  Serious: Yes (Other)
  Sender: FDA-Public Use
  Company Number: US-AMGEN-USASL2016090216

PATIENT
  Age: 63 Year
  Sex: Female

DRUGS (3)
  1. KYPROLIS [Suspect]
     Active Substance: CARFILZOMIB
     Dosage: UNK ONCE DAY A WEEK FOR 3 WEEKS
     Route: 065
  2. KYPROLIS [Suspect]
     Active Substance: CARFILZOMIB
     Indication: PLASMA CELL MYELOMA
     Dosage: UNK UNK, QWK
     Route: 065
     Dates: start: 201510
  3. NEURONTIN [Concomitant]
     Active Substance: GABAPENTIN
     Dosage: 1800 MG, QD

REACTIONS (27)
  - Balance disorder [Unknown]
  - Musculoskeletal discomfort [Unknown]
  - Pain [Unknown]
  - Memory impairment [Not Recovered/Not Resolved]
  - Skin discolouration [Unknown]
  - Fall [Unknown]
  - Asthenia [Unknown]
  - Cervical vertebral fracture [Unknown]
  - Contusion [Unknown]
  - Neck pain [Unknown]
  - Inappropriate schedule of drug administration [Unknown]
  - Vision blurred [Unknown]
  - Hypotension [Recovered/Resolved]
  - Suicidal ideation [Recovered/Resolved]
  - Weight increased [Unknown]
  - Mobility decreased [Unknown]
  - General physical health deterioration [Unknown]
  - Head discomfort [Unknown]
  - Musculoskeletal stiffness [Unknown]
  - Photophobia [Unknown]
  - Muscular weakness [Unknown]
  - Insomnia [Unknown]
  - Neuropathy peripheral [Unknown]
  - Swelling [Unknown]
  - Muscle spasms [Unknown]
  - Fatigue [Unknown]
  - Peripheral vascular disorder [Unknown]

NARRATIVE: CASE EVENT DATE: 2016
